FAERS Safety Report 20559295 (Version 3)
Quarter: 2022Q1

REPORT INFORMATION
  Report Type: Spontaneous
  Country: US (occurrence: US)
  Receive Date: 20220307
  Receipt Date: 20220324
  Transmission Date: 20220424
  Serious: No
  Sender: FDA-Public Use
  Company Number: US-GSKCCFUS-Case-01310913_AE-76322

PATIENT
  Age: 55 Year
  Sex: Male
  Weight: 91.61 kg

DRUGS (1)
  1. SOTROVIMAB [Suspect]
     Active Substance: SOTROVIMAB
     Indication: Product used for unknown indication
     Dosage: 500 MG, 62.5 MG/ML
     Route: 042
     Dates: start: 20220302

REACTIONS (3)
  - Chills [Recovered/Resolved]
  - Blood pressure increased [Recovering/Resolving]
  - Feeling cold [Recovered/Resolved]

NARRATIVE: CASE EVENT DATE: 20220302
